FAERS Safety Report 14226572 (Version 2)
Quarter: 2017Q4

REPORT INFORMATION
  Report Type: Report from Study
  Country: US (occurrence: US)
  Receive Date: 20171127
  Receipt Date: 20171206
  Transmission Date: 20180321
  Serious: Yes (Other)
  Sender: FDA-Public Use
  Company Number: US-PFIZER INC-2017501652

PATIENT
  Age: 58 Year
  Sex: Female

DRUGS (1)
  1. IBRANCE [Suspect]
     Active Substance: PALBOCICLIB
     Indication: BREAST CANCER METASTATIC
     Dosage: 125 MG, 1X/DAY
     Route: 048
     Dates: start: 20171117

REACTIONS (11)
  - Nausea [Unknown]
  - Dyspnoea [Recovering/Resolving]
  - Dyspepsia [Unknown]
  - Vomiting [Unknown]
  - Decreased appetite [Unknown]
  - Constipation [Unknown]
  - Stomatitis [Unknown]
  - Lung disorder [Unknown]
  - Dysgeusia [Unknown]
  - Joint swelling [Unknown]
  - Weight decreased [Unknown]

NARRATIVE: CASE EVENT DATE: 2017
